FAERS Safety Report 20041590 (Version 2)
Quarter: 2021Q4

REPORT INFORMATION
  Report Type: Other
  Country: JP (occurrence: JP)
  Receive Date: 20211108
  Receipt Date: 20211110
  Transmission Date: 20220303
  Serious: Yes (Death)
  Sender: FDA-Public Use
  Company Number: JP-CHUGAI-2021024758

PATIENT
  Age: 53 Year
  Sex: Female

DRUGS (6)
  1. AVASTIN [Suspect]
     Active Substance: BEVACIZUMAB
     Indication: Neuroendocrine carcinoma
     Route: 041
  2. IRINOTECAN HYDROCHLORIDE [Concomitant]
     Active Substance: IRINOTECAN HYDROCHLORIDE
     Indication: Neuroendocrine carcinoma
     Route: 041
  3. FLUOROURACIL [Concomitant]
     Active Substance: FLUOROURACIL
     Indication: Neuroendocrine carcinoma
     Dosage: UNK
     Route: 040
  4. FLUOROURACIL [Concomitant]
     Active Substance: FLUOROURACIL
     Dosage: UNK
     Route: 041
  5. LEVOLEUCOVORIN CALCIUM [Concomitant]
     Active Substance: LEVOLEUCOVORIN CALCIUM
     Indication: Neuroendocrine carcinoma
     Route: 041
  6. OXALIPLATIN [Concomitant]
     Active Substance: OXALIPLATIN
     Indication: Neuroendocrine carcinoma
     Route: 041

REACTIONS (2)
  - Disease progression [Fatal]
  - Off label use [Unknown]
